FAERS Safety Report 18622222 (Version 1)
Quarter: 2020Q4

REPORT INFORMATION
  Report Type: Spontaneous
  Country: DE (occurrence: DE)
  Receive Date: 20201216
  Receipt Date: 20201216
  Transmission Date: 20210114
  Serious: Yes (Life-Threatening)
  Sender: FDA-Public Use
  Company Number: DE-SUN PHARMACEUTICAL INDUSTRIES LTD-2020RR-271526

PATIENT
  Age: 10 Year
  Sex: Male
  Weight: 20 kg

DRUGS (4)
  1. ESOMEPRAZOL [Concomitant]
     Active Substance: ESOMEPRAZOLE
     Indication: PRODUCT USED FOR UNKNOWN INDICATION
     Dosage: UNK
     Route: 048
  2. MOVICOL [Concomitant]
     Active Substance: POLYETHYLENE GLYCOL 3350\POTASSIUM CHLORIDE\SODIUM BICARBONATE\SODIUM CHLORIDE
     Indication: CONSTIPATION
     Dosage: DAILY DOSE: 2 DF DOSAGE FORM EVERY DAYS 2 SEPARATED DOSES
     Route: 065
  3. TETRABENAZINE. [Suspect]
     Active Substance: TETRABENAZINE
     Indication: HYPERKINESIA
     Dosage: DAILY DOSE: 25 MG MILLGRAM(S) EVERY DAYS 2 SEPARATED DOSES
     Route: 048
     Dates: start: 20201011, end: 20201022
  4. TETRABENAZINE. [Suspect]
     Active Substance: TETRABENAZINE
     Dosage: DAILY DOSE: 50 MG MILLGRAM(S) EVERY DAYS 2 SEPARATED DOSES
     Route: 048
     Dates: start: 20201022, end: 20201026

REACTIONS (5)
  - Eye movement disorder [Recovering/Resolving]
  - Somnolence [Recovering/Resolving]
  - Hypotonia [Recovering/Resolving]
  - Pyrexia [Recovering/Resolving]
  - Decreased appetite [Recovering/Resolving]

NARRATIVE: CASE EVENT DATE: 20201026
